FAERS Safety Report 9701961 (Version 1)
Quarter: 2013Q4

REPORT INFORMATION
  Report Type: Spontaneous
  Country: CH (occurrence: None)
  Receive Date: 20131120
  Receipt Date: 20131120
  Transmission Date: 20140711
  Serious: Yes (Life-Threatening)
  Sender: FDA-Public Use
  Company Number: 20130667

PATIENT
  Sex: Female

DRUGS (1)
  1. FERINJECT (FERRIC CARBOXYMALTOSE-VIFOR) [Suspect]
     Indication: IRON DEFICIENCY ANAEMIA

REACTIONS (1)
  - Generalised oedema [None]
